FAERS Safety Report 7369157-7 (Version None)
Quarter: 2011Q1

REPORT INFORMATION
  Report Type: 
  Country: None (occurrence: None)
  Receive Date: 20110323
  Receipt Date: 20110317
  Transmission Date: 20110831
  Serious: Yes (Other)
  Sender: FDA-Public Use
  Company Number: US-PFIZER INC-2010178504

PATIENT
  Sex: Female

DRUGS (3)
  1. LEXAPRO [Concomitant]
     Indication: DEPRESSION
     Dosage: UNK
     Dates: start: 20050101
  2. LEXAPRO [Concomitant]
     Indication: ANXIETY
  3. CHANTIX [Suspect]
     Indication: SMOKING CESSATION THERAPY
     Dosage: STARTER PACK
     Dates: start: 20080225, end: 20080401

REACTIONS (8)
  - DISTURBANCE IN ATTENTION [None]
  - DEPRESSION [None]
  - AMNESIA [None]
  - MOOD SWINGS [None]
  - SUICIDAL IDEATION [None]
  - AGGRESSION [None]
  - ANXIETY [None]
  - ANGER [None]
